FAERS Safety Report 6453474-9 (Version None)
Quarter: 2009Q4

REPORT INFORMATION
  Report Type: 
  Country: None (occurrence: None)
  Receive Date: 20091124
  Receipt Date: 20091112
  Transmission Date: 20100525
  Serious: No
  Sender: FDA-Public Use
  Company Number: US-B.I. PHARMACEUTICALS,INC./RIDGEFIELD-2009-BP-12557BP

PATIENT
  Age: 66 Year
  Sex: Female

DRUGS (2)
  1. COMBIVENT [Suspect]
     Route: 055
  2. OXYGEN [Concomitant]

REACTIONS (2)
  - ASTHENIA [None]
  - MALAISE [None]
